FAERS Safety Report 8984504 (Version 4)
Quarter: 2013Q3

REPORT INFORMATION
  Report Type: Report from Study
  Country: JP (occurrence: JP)
  Receive Date: 20121226
  Receipt Date: 20130712
  Transmission Date: 20140515
  Serious: Yes (Other)
  Sender: FDA-Public Use
  Company Number: JP-PFIZER INC-2012324928

PATIENT
  Age: 37 Year
  Sex: Female
  Weight: 56 kg

DRUGS (33)
  1. CELECOX [Suspect]
     Indication: ARTHRALGIA
     Dosage: 200 MG, DAILY
     Route: 048
     Dates: start: 20070919
  2. PROGRAF [Suspect]
     Indication: LUPUS NEPHRITIS
     Dosage: 1 MG/DAY
     Route: 048
     Dates: start: 20070919, end: 20071002
  3. PROGRAF [Suspect]
     Dosage: 2 MG/DAY
     Route: 048
     Dates: start: 20071003, end: 20071023
  4. PROGRAF [Suspect]
     Dosage: 3 MG/DAY
     Route: 048
     Dates: start: 20071024
  5. PREDNISOLONE [Suspect]
     Indication: LUPUS NEPHRITIS
     Dosage: 18 MG, DAILY
     Route: 048
     Dates: end: 20071002
  6. PREDNISOLONE [Suspect]
     Dosage: 17 MG, DAILY
     Route: 048
     Dates: start: 20071003, end: 20071113
  7. PREDNISOLONE [Suspect]
     Dosage: 16 MG, DAILY
     Route: 048
     Dates: start: 20071114, end: 20080122
  8. PREDNISOLONE [Suspect]
     Dosage: 15 MG, DAILY
     Route: 048
     Dates: start: 20080123, end: 20080916
  9. PREDNISOLONE [Suspect]
     Dosage: 14 MG, DAILY
     Route: 048
     Dates: start: 20080917, end: 20081210
  10. PREDNISOLONE [Suspect]
     Dosage: 13 MG, DAILY
     Route: 048
     Dates: start: 20081211, end: 20090217
  11. PREDNISOLONE [Suspect]
     Dosage: 12 MG, DAILY
     Route: 048
     Dates: start: 20090218, end: 20090421
  12. PREDNISOLONE [Suspect]
     Dosage: 13 MG, DAILY
     Route: 048
     Dates: start: 20090422, end: 20090623
  13. PREDNISOLONE [Suspect]
     Dosage: 12 MG, DAILY
     Route: 048
     Dates: start: 20090624, end: 20090825
  14. PREDNISOLONE [Suspect]
     Dosage: 11 MG, DAILY
     Route: 048
     Dates: start: 20090826, end: 20091103
  15. PREDNISOLONE [Suspect]
     Dosage: 10 MG, DAILY
     Route: 048
     Dates: start: 20091104, end: 20101107
  16. PREDNISOLONE [Suspect]
     Dosage: 9 MG, DAILY
     Route: 048
     Dates: start: 20101108, end: 20110508
  17. PREDNISOLONE [Suspect]
     Dosage: 10 MG, DAILY
     Route: 048
     Dates: start: 20110509
  18. MUCOSTA [Concomitant]
     Dosage: UNK
     Route: 048
  19. MAGMITT [Concomitant]
     Dosage: UNK
     Route: 048
  20. LAXOBERON [Concomitant]
     Dosage: UNK
     Route: 048
     Dates: end: 20080916
  21. LASIX [Concomitant]
     Dosage: UNK
     Route: 048
  22. CRESTOR [Concomitant]
     Dosage: UNK
     Route: 048
  23. LENDORMIN [Concomitant]
     Dosage: UNK
     Route: 048
     Dates: start: 20080220, end: 20120213
  24. ALLELOCK [Concomitant]
     Dosage: UNK
     Route: 048
     Dates: start: 20071024, end: 20110131
  25. ZADITEN [Concomitant]
     Dosage: UNK
     Route: 047
     Dates: start: 20080319, end: 20080819
  26. FOSAMAC [Concomitant]
     Dosage: UNK
     Route: 048
     Dates: start: 20080730
  27. GLAKAY [Concomitant]
     Dosage: UNK
     Route: 048
     Dates: start: 20080730
  28. INTEBAN [Concomitant]
     Dosage: UNK
     Dates: start: 20080820, end: 20081015
  29. BENZALIN [Concomitant]
     Dosage: UNK
     Route: 048
     Dates: end: 20091208
  30. LUVOX [Concomitant]
     Dosage: UNK
     Dates: start: 20100113
  31. ALLEGRA [Concomitant]
     Dosage: UNK
     Dates: start: 20110201
  32. UROCALUN [Concomitant]
     Dosage: UNK
     Dates: start: 20110820
  33. CERCINE [Concomitant]
     Dosage: UNK
     Route: 048

REACTIONS (7)
  - Calculus ureteric [Recovering/Resolving]
  - Nephrolithiasis [Recovering/Resolving]
  - Depression [Recovering/Resolving]
  - Abdominal pain upper [Recovering/Resolving]
  - Insomnia [Recovering/Resolving]
  - Insomnia [Recovering/Resolving]
  - Erythema [Recovered/Resolved]
